FAERS Safety Report 15226552 (Version 2)
Quarter: 2018Q3

REPORT INFORMATION
  Report Type: Spontaneous
  Country: JP (occurrence: JP)
  Receive Date: 20180801
  Receipt Date: 20180919
  Transmission Date: 20181010
  Serious: Yes (Hospitalization, Other)
  Sender: FDA-Public Use
  Company Number: JP-ASTRAZENECA-2018SE96437

PATIENT
  Age: 69 Year
  Sex: Female
  Weight: 50 kg

DRUGS (21)
  1. BFLUID [Concomitant]
     Active Substance: AMINO ACIDS\DEXTROSE\ELECTROLYTES NOS\VITAMINS
     Dosage: 500 ML UNTIL 22:00
     Route: 041
     Dates: start: 20180705, end: 20180705
  2. DENOTAS [Concomitant]
     Active Substance: CALCIUM CARBONATE\CHOLECALCIFEROL\MAGNESIUM CARBONATE
     Dosage: 2 DF 30 MIN AFTER BREAKFAST
     Route: 048
     Dates: start: 20180529
  3. ADETPHOS?L [Concomitant]
     Dosage: 40 ML NUMBER OF SEPARATE DOSAGES UNKNOWN
     Route: 065
     Dates: start: 20180705, end: 20180705
  4. DESALEX [Concomitant]
     Active Substance: DESLORATADINE
     Indication: PRURITUS
     Dosage: 5.0MG AS REQUIRED
     Route: 048
     Dates: start: 20180709
  5. LOPEMIN [Concomitant]
     Active Substance: LOPERAMIDE HYDROCHLORIDE
     Indication: DIARRHOEA
     Dosage: 1.0MG AS REQUIRED
     Route: 048
     Dates: start: 20180629
  6. SENNOSIDE [Concomitant]
     Active Substance: SENNOSIDES
     Indication: CONSTIPATION
     Dosage: 12.0MG AS REQUIRED
     Route: 048
     Dates: start: 20180519
  7. HIRUDOID [Concomitant]
     Active Substance: GLYCOSAMINOGLYCANS
     Dosage: DOSE UNKNOWN, NECK
     Route: 062
     Dates: start: 20180529
  8. MEYLON [Concomitant]
     Active Substance: SODIUM BICARBONATE
     Dosage: 20 ML NUMBER OF SEPARATE DOSAGES UNKNOWN
     Route: 042
     Dates: start: 20180705, end: 20180705
  9. ANTEBATE [Concomitant]
     Active Substance: BETAMETHASONE DIPROPIONATE
     Indication: CHEST DISCOMFORT
     Route: 062
     Dates: start: 20180709
  10. ANTEBATE [Concomitant]
     Active Substance: BETAMETHASONE DIPROPIONATE
     Indication: LIMB DISCOMFORT
     Route: 062
     Dates: start: 20180709
  11. RANMARK [Concomitant]
     Active Substance: DENOSUMAB
     Indication: METASTASES TO BONE
     Dosage: 120.0ML UNKNOWN
     Route: 058
     Dates: start: 20180529
  12. HIRUDOID [Concomitant]
     Active Substance: GLYCOSAMINOGLYCANS
     Dosage: DOSE UNKNOWN, FACE AND NECK
     Route: 062
     Dates: start: 20180521
  13. BFLUID [Concomitant]
     Active Substance: AMINO ACIDS\DEXTROSE\ELECTROLYTES NOS\VITAMINS
     Dosage: 500 ML 22:00 TO 10:00
     Route: 041
     Dates: start: 20180705, end: 20180708
  14. LIDOMEX [Concomitant]
     Active Substance: PREDNISOLONE VALERATE ACETATE
     Dosage: DOSE UNKNOWN
     Route: 062
     Dates: start: 20180608
  15. IRESSA [Suspect]
     Active Substance: GEFITINIB
     Indication: LUNG ADENOCARCINOMA
     Route: 048
     Dates: start: 20180519, end: 20180714
  16. TRAMAL OD [Suspect]
     Active Substance: TRAMADOL
     Route: 048
     Dates: start: 20180522
  17. CELECOX [Concomitant]
     Active Substance: CELECOXIB
     Dosage: 100 MG TWO TIMES A DAY 30 MIN AFTER BREAKFAST AND EVENING MEAL
     Route: 048
     Dates: start: 20180516
  18. BFLUID [Concomitant]
     Active Substance: AMINO ACIDS\DEXTROSE\ELECTROLYTES NOS\VITAMINS
     Dosage: 500 ML 10:00 TO 22:00
     Route: 041
     Dates: start: 20180706, end: 20180709
  19. FAMOTIDINE D [Concomitant]
     Active Substance: FAMOTIDINE
     Dosage: 20 MG 30 MIN AFTER BREAKFAST AND EVENING MEAL
     Route: 048
     Dates: start: 20180516
  20. CLOSTRIDIUM BUTYRICUM [Concomitant]
     Active Substance: CLOSTRIDIUM BUTYRICUM SPORES STRAIN M-55
     Dosage: 3 DF 30 MIN AFTER BREAKFAST, LUNCH, AND EVENING MEAL
     Route: 048
     Dates: start: 20180529
  21. SOLDEM 1 [Concomitant]
     Active Substance: DEXTROSE\SODIUM CHLORIDE\SODIUM LACTATE
     Dosage: 200 ML NUMBER OF SEPARATE DOSAGES UNKNOWN
     Route: 041
     Dates: start: 20180705

REACTIONS (5)
  - Decreased appetite [Not Recovered/Not Resolved]
  - Hepatic function abnormal [Recovered/Resolved]
  - Metastases to central nervous system [Unknown]
  - Metastases to bone [Unknown]
  - Skin disorder [Unknown]

NARRATIVE: CASE EVENT DATE: 20180705
